FAERS Safety Report 5848728-0 (Version None)
Quarter: 2008Q3

REPORT INFORMATION
  Report Type: 
  Country: None (occurrence: None)
  Receive Date: 20080818
  Receipt Date: 20080804
  Transmission Date: 20090109
  Serious: No
  Sender: FDA-Public Use
  Company Number: US-BOEHRINGER INGELHEIM GMBH, GERMANY-2008-BP-12334BP

PATIENT
  Age: 79 Year
  Sex: Female

DRUGS (3)
  1. SPIRIVA [Suspect]
     Indication: OXYGEN SATURATION DECREASED
     Route: 055
     Dates: start: 20070801, end: 20080710
  2. ADVAIR DISKUS 100/50 [Concomitant]
  3. OXYGEN [Concomitant]
     Route: 055

REACTIONS (2)
  - DRY MOUTH [None]
  - URINARY INCONTINENCE [None]
